FAERS Safety Report 7736878-3 (Version None)
Quarter: 2011Q3

REPORT INFORMATION
  Report Type: 
  Country: None (occurrence: None)
  Receive Date: 20110908
  Receipt Date: 20110901
  Transmission Date: 20111222
  Serious: Yes (Congenital Anomaly, Other)
  Sender: FDA-Public Use
  Company Number: US-PFIZER INC-2011205085

PATIENT
  Sex: Female

DRUGS (1)
  1. SERTRALINE HYDROCHLORIDE [Suspect]
     Indication: DEPRESSION
     Dosage: 10 MG, 1X/DAY
     Dates: start: 20110622, end: 20110708

REACTIONS (3)
  - CLEFT PALATE [None]
  - MATERNAL EXPOSURE DURING PREGNANCY [None]
  - ASPIRATION [None]
